FAERS Safety Report 4281654-X (Version None)
Quarter: 2004Q1

REPORT INFORMATION
  Report Type: 
  Country: None (occurrence: None)
  Receive Date: 20040120
  Receipt Date: 20030923
  Transmission Date: 20041129
  Serious: No
  Sender: FDA-Public Use
  Company Number: 2003-09-3040

PATIENT
  Age: 81 Year
  Sex: Male
  Weight: 90.7194 kg

DRUGS (1)
  1. CLARINEX [Suspect]
     Dosage: 5MG ORAL
     Route: 048
     Dates: start: 20020101, end: 20030101

REACTIONS (1)
  - DIARRHOEA [None]
